FAERS Safety Report 15558919 (Version 1)
Quarter: 2018Q4

REPORT INFORMATION
  Report Type: Spontaneous
  Country: CN (occurrence: CN)
  Receive Date: 20181029
  Receipt Date: 20181029
  Transmission Date: 20190205
  Serious: Yes (Other)
  Sender: FDA-Public Use
  Company Number: CN-IPSEN BIOPHARMACEUTICALS, INC.-2018-16006

PATIENT
  Age: 80 Year
  Sex: Male

DRUGS (1)
  1. DIPHERELINE [Suspect]
     Active Substance: TRIPTORELIN ACETATE
     Indication: PROSTATE CANCER
     Route: 030
     Dates: start: 20180531

REACTIONS (2)
  - Haemoglobin decreased [Not Recovered/Not Resolved]
  - Syncope [Not Recovered/Not Resolved]

NARRATIVE: CASE EVENT DATE: 20180617
